FAERS Safety Report 11659473 (Version 1)
Quarter: 2015Q4

REPORT INFORMATION
  Report Type: Report from Study
  Country: US (occurrence: US)
  Receive Date: 20151026
  Receipt Date: 20151026
  Transmission Date: 20160304
  Serious: Yes (Hospitalization)
  Sender: FDA-Public Use
  Company Number: US-BIOGENIDEC-2015BI142356

PATIENT
  Age: 68 Year
  Sex: Female

DRUGS (4)
  1. TECFIDERA [Suspect]
     Active Substance: DIMETHYL FUMARATE
     Indication: MULTIPLE SCLEROSIS
     Route: 048
     Dates: start: 20140709
  2. VITAMIN D [Concomitant]
     Active Substance: CHOLECALCIFEROL
  3. ALEVE [Concomitant]
     Active Substance: NAPROXEN SODIUM
  4. TECFIDERA [Suspect]
     Active Substance: DIMETHYL FUMARATE
     Indication: MULTIPLE SCLEROSIS
     Route: 048
     Dates: start: 20140702, end: 20140708

REACTIONS (6)
  - Tibia fracture [Unknown]
  - Fibula fracture [Unknown]
  - General symptom [Unknown]
  - Catheter placement [Unknown]
  - Ankle fracture [Unknown]
  - Abasia [Unknown]
